FAERS Safety Report 8463417-4 (Version None)
Quarter: 2012Q2

REPORT INFORMATION
  Report Type: 
  Country: None (occurrence: None)
  Receive Date: 20120625
  Receipt Date: 20120618
  Transmission Date: 20120825
  Serious: Yes (Other)
  Sender: FDA-Public Use
  Company Number: PT-MERCK-1206USA03235

PATIENT
  Age: 74 Year
  Sex: Female
  Weight: 71 kg

DRUGS (5)
  1. OLSAR [Concomitant]
     Route: 048
  2. LANSOPRAZOLE [Concomitant]
     Route: 048
  3. DIAMICRON [Concomitant]
     Route: 048
  4. JANUMET [Suspect]
     Indication: DIABETES MELLITUS
     Route: 048
     Dates: start: 20120430
  5. SINVASTATINA TETRAFARMA [Concomitant]
     Route: 048

REACTIONS (4)
  - ERYTHEMA [None]
  - ABDOMINAL DISCOMFORT [None]
  - FACE OEDEMA [None]
  - FACIAL PAIN [None]
